FAERS Safety Report 15214773 (Version 1)
Quarter: 2018Q3

REPORT INFORMATION
  Report Type: Report from Study
  Country: JM (occurrence: JM)
  Receive Date: 20180730
  Receipt Date: 20180730
  Transmission Date: 20181010
  Serious: Yes (Death, Hospitalization, Other)
  Sender: FDA-Public Use
  Company Number: PHHY2018JM013735

PATIENT
  Age: 53 Year
  Sex: Female
  Weight: 57.5 kg

DRUGS (3)
  1. GLIVEC [Suspect]
     Active Substance: IMATINIB MESYLATE
     Indication: CHRONIC MYELOID LEUKAEMIA
     Dosage: 400 MG, UNK
     Route: 065
     Dates: start: 201205
  2. CYTARABINE. [Concomitant]
     Active Substance: CYTARABINE
     Indication: PRODUCT USED FOR UNKNOWN INDICATION
     Route: 065
  3. GLIVEC [Suspect]
     Active Substance: IMATINIB MESYLATE
     Dosage: 600 MG, UNK
     Route: 065

REACTIONS (7)
  - Liver function test abnormal [Unknown]
  - Hepatomegaly [Unknown]
  - Death [Fatal]
  - White blood cell count increased [Recovering/Resolving]
  - Leukocytosis [Unknown]
  - Chloroma [Recovering/Resolving]
  - Chronic myeloid leukaemia [Unknown]

NARRATIVE: CASE EVENT DATE: 201805
